FAERS Safety Report 7625670-6 (Version None)
Quarter: 2011Q3

REPORT INFORMATION
  Report Type: 
  Country: None (occurrence: None)
  Receive Date: 20110713
  Receipt Date: 20110708
  Transmission Date: 20111222
  Serious: Yes (Other)
  Sender: FDA-Public Use
  Company Number: CL-324-2011

PATIENT
  Age: 71 Year
  Sex: Female

DRUGS (2)
  1. METRONIDAZOLE [Suspect]
     Indication: PNEUMONIA
     Dosage: INTRAVENOUS
     Route: 042
  2. OMEPRAZOLE [Suspect]

REACTIONS (3)
  - ELECTROCARDIOGRAM T WAVE INVERSION [None]
  - DRUG INTERACTION [None]
  - ELECTROCARDIOGRAM QT PROLONGED [None]
